FAERS Safety Report 10178714 (Version 1)
Quarter: 2014Q2

REPORT INFORMATION
  Report Type: Spontaneous
  Country: DE (occurrence: DE)
  Receive Date: 20140519
  Receipt Date: 20140519
  Transmission Date: 20141212
  Serious: Yes (Other)
  Sender: FDA-Public Use
  Company Number: DE-BIOGENIDEC-2014BI046182

PATIENT
  Sex: Female
  Weight: 131 kg

DRUGS (3)
  1. TYSABRI [Suspect]
     Indication: MULTIPLE SCLEROSIS
     Route: 042
     Dates: start: 20120401, end: 20130401
  2. SERTRALIN [Concomitant]
     Indication: DEPRESSION
     Dates: start: 1999
  3. VALSARTAN [Concomitant]
     Indication: HYPERTENSION
     Route: 048
     Dates: start: 201201, end: 20130401

REACTIONS (2)
  - Haemorrhage in pregnancy [Recovered/Resolved]
  - Premature labour [Recovered/Resolved]
